FAERS Safety Report 4656591-9 (Version None)
Quarter: 2005Q2

REPORT INFORMATION
  Report Type: 
  Country: None (occurrence: None)
  Receive Date: 20050506
  Receipt Date: 20050425
  Transmission Date: 20051028
  Serious: Yes (Hospitalization)
  Sender: FDA-Public Use
  Company Number: 2005064842

PATIENT
  Age: 51 Year
  Sex: Female

DRUGS (1)
  1. SUDAFED 12 HOUR [Suspect]
     Indication: SINUS DISORDER
     Dosage: ONE DAILY, ORAL
     Route: 048
     Dates: start: 20050331, end: 20050401

REACTIONS (3)
  - DIZZINESS [None]
  - FEELING ABNORMAL [None]
  - TRANSIENT ISCHAEMIC ATTACK [None]
